FAERS Safety Report 7457886-6 (Version None)
Quarter: 2011Q2

REPORT INFORMATION
  Report Type: 
  Country: None (occurrence: None)
  Receive Date: 20110504
  Receipt Date: 20110426
  Transmission Date: 20111010
  Serious: Yes (Hospitalization, Other)
  Sender: FDA-Public Use
  Company Number: US-NAPPMUNDI-USA-2011-0067296

PATIENT
  Sex: Female

DRUGS (2)
  1. OXYCONTIN (NDA 22-272) [Suspect]
     Indication: CANCER PAIN
     Dosage: 20 MG, Q4- 6H PRN
  2. ROXICODONE [Concomitant]
     Indication: BREAKTHROUGH PAIN
     Dosage: 30 MG, UNK

REACTIONS (5)
  - HEPATIC CANCER METASTATIC [None]
  - LUNG NEOPLASM MALIGNANT [None]
  - BONE NEOPLASM MALIGNANT [None]
  - HOSPITALISATION [None]
  - MUSCULOSKELETAL PAIN [None]
